FAERS Safety Report 15507711 (Version 1)
Quarter: 2018Q4

REPORT INFORMATION
  Report Type: Spontaneous
  Country: US (occurrence: US)
  Receive Date: 20181016
  Receipt Date: 20181016
  Transmission Date: 20190205
  Serious: No
  Sender: FDA-Public Use
  Company Number: US-SA-2018SA285300

PATIENT
  Age: 59 Year
  Sex: Female

DRUGS (9)
  1. BETAMETHASONE. [Concomitant]
     Active Substance: BETAMETHASONE
  2. SYNTHROID [Concomitant]
     Active Substance: LEVOTHYROXINE SODIUM
  3. VITAMIN D3 [Concomitant]
     Active Substance: CHOLECALCIFEROL
  4. FLUTICASONE PROPIONATE. [Concomitant]
     Active Substance: FLUTICASONE PROPIONATE
  5. DUPIXENT [Suspect]
     Active Substance: DUPILUMAB
     Indication: DERMATITIS ATOPIC
     Dosage: UNK UNK, QOW
     Dates: start: 201707
  6. INDOMETHACIN [INDOMETACIN] [Concomitant]
  7. AMLODIPINE BESYLATE. [Concomitant]
     Active Substance: AMLODIPINE BESYLATE
  8. VALSARTAN. [Concomitant]
     Active Substance: VALSARTAN
  9. LANTISEPTIC SKIN PROTECTANT [Concomitant]
     Active Substance: LANOLIN

REACTIONS (6)
  - Pruritus [Recovering/Resolving]
  - Dermatitis [Recovering/Resolving]
  - Pruritus generalised [Recovering/Resolving]
  - Paraesthesia [Recovered/Resolved]
  - Therapeutic response decreased [Unknown]
  - Oedema peripheral [Recovering/Resolving]
